FAERS Safety Report 22396746 (Version 1)
Quarter: 2023Q2

REPORT INFORMATION
  Report Type: Spontaneous
  Country: US (occurrence: US)
  Receive Date: 20230601
  Receipt Date: 20230601
  Transmission Date: 20230721
  Serious: No
  Sender: FDA-Public Use
  Company Number: US-APIL-2312604US

PATIENT
  Sex: Female
  Weight: 136.07 kg

DRUGS (10)
  1. VIBERZI [Suspect]
     Active Substance: ELUXADOLINE
     Indication: Irritable bowel syndrome
     Dosage: 1 DF, QD
     Route: 048
     Dates: start: 202208, end: 202209
  2. LORAZEPAM [Concomitant]
     Active Substance: LORAZEPAM
     Dosage: UNK
  3. HYDROXYZINE PAMOATE [Concomitant]
     Active Substance: HYDROXYZINE PAMOATE
     Dosage: UNK
  4. TOPIRAMATE [Concomitant]
     Active Substance: TOPIRAMATE
     Dosage: UNK
  5. ESCITALOPRAM [Concomitant]
     Active Substance: ESCITALOPRAM OXALATE
     Dosage: UNK
  6. CLONAZEPAM [Concomitant]
     Active Substance: CLONAZEPAM
     Dosage: UNK
  7. XIFAXAN [Concomitant]
     Active Substance: RIFAXIMIN
     Dosage: UNK
  8. LOPERAMIDE [Concomitant]
     Active Substance: LOPERAMIDE
  9. ALOSETRON [Concomitant]
     Active Substance: ALOSETRON
     Dosage: UNK
  10. UNKNOWN TOPICAL TREATMENT [Concomitant]
     Dosage: UNK

REACTIONS (12)
  - Irritable bowel syndrome [Not Recovered/Not Resolved]
  - Pain [Not Recovered/Not Resolved]
  - Illness [Unknown]
  - Condition aggravated [Unknown]
  - Headache [Not Recovered/Not Resolved]
  - Abdominal pain [Not Recovered/Not Resolved]
  - Rectal fissure [Not Recovered/Not Resolved]
  - Nausea [Not Recovered/Not Resolved]
  - Vomiting [Not Recovered/Not Resolved]
  - Asthenia [Not Recovered/Not Resolved]
  - Fatigue [Not Recovered/Not Resolved]
  - Abdominal pain [Recovered/Resolved]

NARRATIVE: CASE EVENT DATE: 20220101
